FAERS Safety Report 8681645 (Version 2)
Quarter: 2012Q4

REPORT INFORMATION
  Report Type: 
  Country: US (occurrence: US)
  Receive Date: 20120725
  Receipt Date: 20120830
  Transmission Date: 20130627
  Serious: Yes (Hospitalization)
  Sender: FDA-Public Use
  Company Number: US-GE HEALTHCARE MEDICAL DIAGNOSTICS-OMPQ-PR-1207S-0783

PATIENT
  Age: 87 Year
  Sex: Male
  Weight: 87.62 kg

DRUGS (12)
  1. OMNIPAQUE [Suspect]
     Indication: ABDOMINAL PAIN UPPER
     Route: 042
     Dates: start: 20120301, end: 20120301
  2. OMNIPAQUE [Suspect]
     Indication: ABDOMINAL PAIN UPPER
  3. OMNIPAQUE [Suspect]
     Indication: DIAGNOSTIC PROCEDURE
  4. BUMETANIDE [Concomitant]
  5. DILTIAZEM [Concomitant]
  6. FOLIC ACID [Concomitant]
  7. MEROPENEM [Concomitant]
  8. METOPROLOL TARTRATE [Concomitant]
  9. OLMESARTAN [Concomitant]
  10. PAROXETINE [Concomitant]
  11. KCL [Concomitant]
  12. MORPHINE SULFATE [Concomitant]

REACTIONS (1)
  - Blood creatinine increased [Recovered/Resolved]
